FAERS Safety Report 6191340-7 (Version None)
Quarter: 2009Q2

REPORT INFORMATION
  Report Type: 
  Country: None (occurrence: None)
  Receive Date: 20090515
  Receipt Date: 20090508
  Transmission Date: 20091009
  Serious: Yes (Other)
  Sender: FDA-Public Use
  Company Number: US-BAYER-200910593NA

PATIENT
  Age: 35 Year
  Sex: Female
  Weight: 88 kg

DRUGS (3)
  1. MIRENA [Suspect]
     Indication: CONTRACEPTION
     Dosage: CONTINUOUS
     Route: 015
     Dates: start: 20081017
  2. NOR-QD [Concomitant]
  3. VITAMIN TAB [Concomitant]

REACTIONS (2)
  - IUCD COMPLICATION [None]
  - UTERINE RUPTURE [None]
